FAERS Safety Report 24072961 (Version 1)
Quarter: 2024Q3

REPORT INFORMATION
  Report Type: Spontaneous
  Country: US (occurrence: US)
  Receive Date: 20240710
  Receipt Date: 20240710
  Transmission Date: 20241017
  Serious: Yes (Hospitalization, Other)
  Sender: SANOFI AVENTIS
  Company Number: US-SA-SAC20240704000296

PATIENT
  Age: 58 Year
  Sex: Female

DRUGS (1)
  1. XENPOZYME [Suspect]
     Active Substance: OLIPUDASE ALFA-RPCP
     Indication: Niemann-Pick disease
     Dosage: 228 MG, QOW ((STRENGTH: 20 MG AND 4 MG) AT A DOSE OF 220 MG+8 MG RESPECTIVELY WITH TOTAL DOSE OF 228
     Route: 042
     Dates: start: 202403

REACTIONS (2)
  - Deep vein thrombosis [Unknown]
  - Fall [Unknown]

NARRATIVE: CASE EVENT DATE: 20240101
